FAERS Safety Report 6478357-X (Version None)
Quarter: 2009Q4

REPORT INFORMATION
  Report Type: 
  Country: None (occurrence: None)
  Receive Date: 20091207
  Receipt Date: 20091106
  Transmission Date: 20100525
  Serious: No
  Sender: FDA-Public Use
  Company Number: US-BAYER-200916691BCC

PATIENT
  Age: 71 Year
  Sex: Male
  Weight: 84 kg

DRUGS (8)
  1. ALEVE [Suspect]
     Indication: ARTHRITIS
     Dosage: TOTAL DAILY DOSE: 1320 MG  UNIT DOSE: 220 MG
  2. ALEVE [Suspect]
     Indication: ARTHRITIS
     Dosage: TOTAL DAILY DOSE: 1320 MG  UNIT DOSE: 220 MG
     Route: 048
  3. UROXATROL [Concomitant]
     Route: 065
  4. POTASSIUM CITRATE [Concomitant]
     Route: 065
  5. BEELITH [Concomitant]
     Indication: MINERAL SUPPLEMENTATION
     Route: 065
  6. CENTRUM SILVER [Concomitant]
     Route: 065
  7. GLUCOSAMINE/CHONDROITIN [Concomitant]
     Route: 065
  8. ASPIRIN [Concomitant]
     Route: 065

REACTIONS (1)
  - ARTHRITIS [None]
